FAERS Safety Report 21623847 (Version 2)
Quarter: 2022Q4

REPORT INFORMATION
  Report Type: Spontaneous
  Country: IT (occurrence: IT)
  Receive Date: 20221121
  Receipt Date: 20221122
  Transmission Date: 20230113
  Serious: Yes (Other)
  Sender: FDA-Public Use
  Company Number: IT-MINISAL02-891573

PATIENT
  Age: 44 Year
  Sex: Male
  Weight: 70 kg

DRUGS (3)
  1. HUMIRA [Suspect]
     Active Substance: ADALIMUMAB
     Indication: Peripheral spondyloarthritis
     Dosage: 40 MG EVERY TWO WEEKS
     Route: 058
     Dates: start: 201005, end: 201907
  2. METHOTREXATE [Suspect]
     Active Substance: METHOTREXATE
     Indication: Peripheral spondyloarthritis
     Dosage: 15 MG PER WEEK
     Route: 058
     Dates: start: 2015, end: 20221018
  3. HYRIMOZ [Suspect]
     Active Substance: ADALIMUMAB-ADAZ
     Indication: Peripheral spondyloarthritis
     Dosage: 40 MG EVERY TWO WEEKS
     Route: 058
     Dates: start: 20190716, end: 20221018

REACTIONS (1)
  - Malignant melanoma stage I [Unknown]

NARRATIVE: CASE EVENT DATE: 20220926
